FAERS Safety Report 4489137-9 (Version None)
Quarter: 2004Q4

REPORT INFORMATION
  Report Type: 
  Country: None (occurrence: None)
  Receive Date: 20041029
  Receipt Date: 20041018
  Transmission Date: 20050328
  Serious: Yes (Hospitalization)
  Sender: FDA-Public Use
  Company Number: US-MERCK-0410USA02726

PATIENT
  Age: 53 Year
  Sex: Female

DRUGS (4)
  1. VIOXX [Suspect]
     Indication: ARTHRITIS
     Route: 048
     Dates: start: 19990101, end: 20030101
  2. VIOXX [Suspect]
     Route: 048
     Dates: start: 20030101, end: 20040901
  3. [THERAPY UNSPECIFIED] [Concomitant]
     Route: 065
  4. PROTONA [Concomitant]
     Route: 065

REACTIONS (2)
  - ARTHROPATHY [None]
  - PULMONARY THROMBOSIS [None]
